FAERS Safety Report 9004650 (Version 2)
Quarter: 2013Q1

REPORT INFORMATION
  Report Type: Spontaneous
  Country: DK (occurrence: None)
  Receive Date: 20121227
  Receipt Date: 20130123
  Transmission Date: 20140127
  Serious: Yes (Other)
  Sender: FDA-Public Use
  Company Number: AUR-APL-2012-05577

PATIENT
  Age: 84 Year
  Sex: Male

DRUGS (2)
  1. METFORMIN [Suspect]
     Indication: DIABETES MELLITUS
  2. SALAZOPYRIN [Suspect]
     Indication: COLITIS ULCERATIVE

REACTIONS (1)
  - Diabetic neuropathy [None]
